FAERS Safety Report 11475608 (Version 1)
Quarter: 2015Q3

REPORT INFORMATION
  Report Type: Spontaneous
  Country: US (occurrence: US)
  Receive Date: 20150909
  Receipt Date: 20150909
  Transmission Date: 20151125
  Serious: No
  Sender: FDA-Public Use
  Company Number: US-ACTELION PHARMACEUTICALS US, INC.-A-NJ2015-122054

PATIENT
  Age: 59 Year
  Sex: Male

DRUGS (3)
  1. CLOTRIMAZOL [Concomitant]
     Active Substance: CLOTRIMAZOLE
  2. VALCHLOR [Suspect]
     Active Substance: MECHLORETHAMINE
     Indication: MYCOSIS FUNGOIDES
     Dosage: UNK
     Route: 061
     Dates: start: 201408
  3. ASA [Concomitant]
     Active Substance: ASPIRIN

REACTIONS (1)
  - Application site pain [Unknown]
